FAERS Safety Report 10560524 (Version 2)
Quarter: 2019Q3

REPORT INFORMATION
  Report Type: Report from Study
  Country: US (occurrence: US)
  Receive Date: 20141103
  Receipt Date: 20190819
  Transmission Date: 20191004
  Serious: No
  Sender: FDA-Public Use
  Company Number: US-SA-2014SA052178

PATIENT
  Age: 13 Year
  Sex: Female
  Weight: 57.5 kg

DRUGS (2)
  1. ALGLUCOSIDASE ALFA [Suspect]
     Active Substance: ALGLUCOSIDASE ALFA
     Dosage: 20.8 MG/KG, QOW
     Route: 041
     Dates: start: 20140409
  2. ALGLUCOSIDASE ALFA [Suspect]
     Active Substance: ALGLUCOSIDASE ALFA
     Indication: GLYCOGEN STORAGE DISEASE TYPE II
     Dosage: 1500 (UNITS NOT PROVIDED); FREUENCY: Q2
     Route: 041
     Dates: start: 20111128

REACTIONS (4)
  - Pain in extremity [Unknown]
  - Viral infection [Recovering/Resolving]
  - Influenza [Recovering/Resolving]
  - Infusion related reaction [Unknown]

NARRATIVE: CASE EVENT DATE: 20140409
